FAERS Safety Report 4482026-5 (Version None)
Quarter: 2004Q4

REPORT INFORMATION
  Report Type: 
  Country: None (occurrence: None)
  Receive Date: 20041020
  Receipt Date: 20041004
  Transmission Date: 20050328
  Serious: Yes (Death)
  Sender: FDA-Public Use
  Company Number: JP_040904581

PATIENT
  Age: 67 Year
  Sex: Male

DRUGS (5)
  1. ONCOVIN [Suspect]
     Indication: B-CELL TYPE ACUTE LEUKAEMIA
     Dosage: 2 MG OTHER
     Route: 050
     Dates: start: 19991116, end: 19991116
  2. CYCLOPHOSPHAMIDE [Concomitant]
  3. DOXORUBICIN HCL [Concomitant]
  4. PREDNISOLONE [Concomitant]
  5. MODACIN (CEFTAZIDIME) [Concomitant]

REACTIONS (6)
  - BRAIN OEDEMA [None]
  - CAROTID ARTERY ATHEROMA [None]
  - CAROTID ARTERY THROMBOSIS [None]
  - CEREBRAL ARTERY OCCLUSION [None]
  - COMA [None]
  - HAEMORRHAGIC CEREBRAL INFARCTION [None]
